FAERS Safety Report 22112802 (Version 1)
Quarter: 2023Q1

REPORT INFORMATION
  Report Type: Spontaneous
  Country: US (occurrence: US)
  Receive Date: 20230320
  Receipt Date: 20230320
  Transmission Date: 20230417
  Serious: Yes (Other)
  Sender: FDA-Public Use
  Company Number: US-STRIDES ARCOLAB LIMITED-2023SP004029

PATIENT

DRUGS (4)
  1. RANITIDINE [Suspect]
     Active Substance: RANITIDINE
     Indication: Product used for unknown indication
     Dosage: UNK, RANITIDINE (BY PRESCRIPTION) (STARTED ON APPROX. 1983 AND ENDED ON APPROX. 2017))
     Route: 065
  2. RANITIDINE [Suspect]
     Active Substance: RANITIDINE
     Dosage: UNK, RANITIDINE (OVER THE COUNTER)(STARTED ON APPROX. 1983 AND ENDED ON APPROX. 2017)
     Route: 065
  3. RANITIDINE [Suspect]
     Active Substance: RANITIDINE
     Dosage: UNK, ZANTAC (BY PRESCRIPTION)(STARTED ON APPROX. 1983 AND ENDED ON APPROX. 2017)
     Route: 065
  4. RANITIDINE [Suspect]
     Active Substance: RANITIDINE
     Dosage: UNK, ZANTAC (OVER THE COUNTER)(STARTED ON APPROX. 1983 AND ENDED ON APPROX. 2017)
     Route: 065

REACTIONS (1)
  - Bladder cancer [Unknown]

NARRATIVE: CASE EVENT DATE: 20220101
